FAERS Safety Report 4969451-0 (Version None)
Quarter: 2006Q2

REPORT INFORMATION
  Report Type: 
  Country: None (occurrence: None)
  Receive Date: 20060406
  Receipt Date: 20060324
  Transmission Date: 20061013
  Serious: No
  Sender: FDA-Public Use
  Company Number: TPA2006A00206

PATIENT
  Age: 9 Decade
  Sex: Male

DRUGS (1)
  1. ROZEREM [Suspect]
     Indication: INITIAL INSOMNIA
     Dosage: 8-16 MG, QHS, PER ORAL
     Route: 048

REACTIONS (6)
  - ABNORMAL DREAMS [None]
  - DRUG INEFFECTIVE [None]
  - INSOMNIA [None]
  - MIDDLE INSOMNIA [None]
  - OVERDOSE [None]
  - THINKING ABNORMAL [None]
